FAERS Safety Report 10067419 (Version 1)
Quarter: 2014Q2

REPORT INFORMATION
  Report Type: Spontaneous
  Country: US (occurrence: US)
  Receive Date: 20140409
  Receipt Date: 20140409
  Transmission Date: 20141212
  Serious: Yes (Hospitalization)
  Sender: FDA-Public Use
  Company Number: US-SA-2014SA039432

PATIENT
  Age: 21 Year
  Sex: Male
  Weight: 58.9 kg

DRUGS (2)
  1. LANTUS [Suspect]
     Indication: DIABETES MELLITUS
     Dosage: DOSE:22 UNIT(S)
     Route: 065
     Dates: start: 2009, end: 20140321
  2. NOVOLOG [Concomitant]

REACTIONS (5)
  - Diabetic ketoacidosis [Not Recovered/Not Resolved]
  - Drug dose omission [Unknown]
  - Chest discomfort [Not Recovered/Not Resolved]
  - Blood bicarbonate decreased [Recovering/Resolving]
  - Blood glucose increased [Recovered/Resolved]
